FAERS Safety Report 19689921 (Version 2)
Quarter: 2021Q3

REPORT INFORMATION
  Report Type: Spontaneous
  Country: US (occurrence: US)
  Receive Date: 20210811
  Receipt Date: 20210816
  Transmission Date: 20211014
  Serious: No
  Sender: FDA-Public Use
  Company Number: US-SA-2021SA260515

PATIENT
  Age: 48 Year
  Sex: Male

DRUGS (5)
  1. DUPIXENT [Suspect]
     Active Substance: DUPILUMAB
     Dosage: 300MG
  2. EUCRISA [Concomitant]
     Active Substance: CRISABOROLE
  3. DUPIXENT [Suspect]
     Active Substance: DUPILUMAB
     Indication: DERMATITIS ATOPIC
     Dosage: UNK
  4. DUPIXENT [Suspect]
     Active Substance: DUPILUMAB
     Dosage: 600 MG, 1X
     Route: 058
     Dates: start: 20210729, end: 20210729
  5. CLOBETASOL [Concomitant]
     Active Substance: CLOBETASOL

REACTIONS (8)
  - Skin exfoliation [Unknown]
  - Incorrect dose administered [Unknown]
  - Skin fissures [Unknown]
  - Skin haemorrhage [Unknown]
  - Sleep disorder [Unknown]
  - Dry skin [Unknown]
  - Erythema [Unknown]
  - Pruritus [Unknown]
